FAERS Safety Report 21455871 (Version 1)
Quarter: 2022Q4

REPORT INFORMATION
  Report Type: Spontaneous
  Country: CN (occurrence: CN)
  Receive Date: 20221014
  Receipt Date: 20221014
  Transmission Date: 20230113
  Serious: Yes (Hospitalization, Other)
  Sender: FDA-Public Use
  Company Number: CN-UCBSA-2022059216

PATIENT
  Age: 9 Year
  Sex: Male

DRUGS (6)
  1. KEPPRA [Suspect]
     Active Substance: LEVETIRACETAM
     Indication: Seizure
     Dosage: UNK
     Dates: start: 2014
  2. KEPPRA [Suspect]
     Active Substance: LEVETIRACETAM
     Indication: Partial seizures
  3. VALPROIC ACID [Suspect]
     Active Substance: VALPROIC ACID
     Indication: Partial seizures
     Dosage: UNK
  4. OXCARBAZEPINE [Suspect]
     Active Substance: OXCARBAZEPINE
     Indication: Partial seizures
     Dosage: UNK
  5. LAMOTRIGINE [Suspect]
     Active Substance: LAMOTRIGINE
     Indication: Partial seizures
     Dosage: UNK
  6. NITRAZEPAM [Suspect]
     Active Substance: NITRAZEPAM
     Indication: Partial seizures
     Dosage: UNK

REACTIONS (2)
  - Partial seizures [Recovered/Resolved]
  - Multiple-drug resistance [Unknown]
